FAERS Safety Report 9478724 (Version 1)
Quarter: 2013Q3

REPORT INFORMATION
  Report Type: Other
  Country: JP (occurrence: JP)
  Receive Date: 20130827
  Receipt Date: 20130827
  Transmission Date: 20140515
  Serious: Yes (Death, Hospitalization)
  Sender: FDA-Public Use
  Company Number: JP-ACTELION-A-CH2013-87571

PATIENT
  Age: 76 Year
  Sex: Male

DRUGS (3)
  1. TRACLEER [Suspect]
     Indication: PULMONARY ARTERIAL HYPERTENSION
     Route: 048
  2. OXYGEN [Concomitant]
  3. TADALAFIL [Concomitant]

REACTIONS (3)
  - Cardio-respiratory arrest [Fatal]
  - Dyspnoea [Unknown]
  - Pulmonary congestion [Unknown]
